FAERS Safety Report 4999201-3 (Version None)
Quarter: 2006Q2

REPORT INFORMATION
  Report Type: 
  Country: None (occurrence: None)
  Receive Date: 20060509
  Receipt Date: 20060509
  Transmission Date: 20061013
  Serious: Yes (Hospitalization)
  Sender: FDA-Public Use
  Company Number: None

PATIENT
  Age: 74 Year
  Sex: Male

DRUGS (18)
  1. FUROSEMIDE [Suspect]
     Indication: SWELLING
     Dosage: 80 MG PO BID
     Route: 048
     Dates: start: 20060214, end: 20060221
  2. METOLAZONE [Suspect]
     Indication: SWELLING
     Dosage: 5 MG PO QD
     Route: 048
     Dates: start: 20060214, end: 20060221
  3. RANITIDINE [Concomitant]
     Indication: BLOOD PRESSURE
  4. ASPIRIN [Concomitant]
  5. FELODIPINE [Concomitant]
  6. GLYBURIDE [Concomitant]
  7. NITROGLYCERIN [Concomitant]
  8. METFORMIN [Concomitant]
  9. SIMVASTATIN [Concomitant]
  10. AMITRIPTYLINE HCL [Concomitant]
  11. TAMOSULOSIN [Concomitant]
  12. TYLENOL W/ CODEINE NO. 3 [Concomitant]
  13. AMIODARONE [Concomitant]
  14. LASIX [Concomitant]
  15. METOLAZONE [Concomitant]
  16. GATIFLOXACIN [Concomitant]
  17. COUMADIN [Concomitant]
  18. FLUNISOLIDE [Concomitant]

REACTIONS (6)
  - BLOOD CREATININE INCREASED [None]
  - BLOOD POTASSIUM DECREASED [None]
  - BLOOD PRESSURE DECREASED [None]
  - DIZZINESS [None]
  - DIZZINESS POSTURAL [None]
  - FALL [None]
